FAERS Safety Report 14029104 (Version 1)
Quarter: 2017Q4

REPORT INFORMATION
  Report Type: Spontaneous
  Country: US (occurrence: None)
  Receive Date: 20171002
  Receipt Date: 20171002
  Transmission Date: 20180321
  Serious: Yes (Disabling, Congenital Anomaly)
  Sender: FDA-Public Use
  Company Number: None

PATIENT
  Age: 1 Day
  Sex: Male
  Weight: 2.72 kg

DRUGS (1)
  1. METHIMAZOLE. [Suspect]
     Active Substance: METHIMAZOLE
     Indication: HYPERTHYROIDISM
     Route: 048

REACTIONS (3)
  - Congenital eye disorder [None]
  - Maternal drugs affecting foetus [None]
  - Retinal anomaly congenital [None]

NARRATIVE: CASE EVENT DATE: 20170818
